FAERS Safety Report 5090713-3 (Version None)
Quarter: 2006Q3

REPORT INFORMATION
  Report Type: 
  Country: None (occurrence: None)
  Receive Date: 20060828
  Receipt Date: 20050915
  Transmission Date: 20061208
  Serious: Yes (Death, Hospitalization, Other)
  Sender: FDA-Public Use
  Company Number: FR-BOEHRINGER INGELHEIM PHARMACEUTICALS, INC.-2005-DE-03753GD

PATIENT
  Age: 58 Year
  Sex: Male

DRUGS (5)
  1. NEVIRAPINE [Suspect]
     Indication: HIV INFECTION
     Dates: start: 19990301, end: 20000801
  2. LAMIVUDINE [Suspect]
     Indication: HIV INFECTION
     Dates: start: 19961201, end: 20000801
  3. STAVUDINE [Suspect]
     Indication: HIV INFECTION
     Dates: start: 19961201
  4. DIDANOSINE [Suspect]
     Indication: HIV INFECTION
     Dates: start: 20000801
  5. INDINIVIR SULFATE [Suspect]
     Indication: HIV INFECTION
     Dates: start: 20000801

REACTIONS (9)
  - ASTERIXIS [None]
  - BODY TEMPERATURE [None]
  - COMA [None]
  - DRUG INEFFECTIVE [None]
  - DRUG RESISTANCE [None]
  - ENCEPHALITIS [None]
  - HEPATIC FAILURE [None]
  - HEPATIC NECROSIS [None]
  - JAUNDICE [None]
